FAERS Safety Report 6618814-6 (Version None)
Quarter: 2010Q1

REPORT INFORMATION
  Report Type: 
  Country: None (occurrence: None)
  Receive Date: 20100304
  Receipt Date: 20100304
  Transmission Date: 20100710
  Serious: Yes (Disabling)
  Sender: FDA-Public Use
  Company Number: None

PATIENT
  Age: 50 Year
  Sex: Male
  Weight: 129.2752 kg

DRUGS (1)
  1. ZICAM GEL SWABS [Suspect]
     Indication: NASOPHARYNGITIS
     Dosage: 1-SWAB AS PERSCRIBED
     Dates: start: 20080201

REACTIONS (2)
  - AGEUSIA [None]
  - ANOSMIA [None]
